FAERS Safety Report 18571595 (Version 1)
Quarter: 2020Q4

REPORT INFORMATION
  Report Type: Spontaneous
  Country: US (occurrence: US)
  Receive Date: 20201202
  Receipt Date: 20201202
  Transmission Date: 20210114
  Serious: Yes (Hospitalization)
  Sender: FDA-Public Use
  Company Number: US-SK LIFE SCIENCE, INC-SKPVG-2020-000699

PATIENT

DRUGS (2)
  1. EYE DROPS                          /00256502/ [Concomitant]
     Active Substance: OXYMETAZOLINE
     Indication: PRODUCT USED FOR UNKNOWN INDICATION
     Route: 065
  2. XCOPRI [Suspect]
     Active Substance: CENOBAMATE
     Indication: STURGE-WEBER SYNDROME
     Dosage: 25 MILLIGRAM, QD
     Route: 048
     Dates: start: 2020

REACTIONS (11)
  - Off label use [Unknown]
  - Asthenia [Recovering/Resolving]
  - Confusional state [Recovering/Resolving]
  - Fall [Recovered/Resolved]
  - Aphasia [Recovering/Resolving]
  - Memory impairment [Recovering/Resolving]
  - Atonic seizures [Recovering/Resolving]
  - Sitting disability [Recovering/Resolving]
  - Hypersomnia [Recovering/Resolving]
  - Automatism [Recovering/Resolving]
  - Medication error [Unknown]

NARRATIVE: CASE EVENT DATE: 2020
